FAERS Safety Report 9722678 (Version 1)
Quarter: 2013Q4

REPORT INFORMATION
  Report Type: Spontaneous
  Country: US (occurrence: US)
  Receive Date: 20131202
  Receipt Date: 20131202
  Transmission Date: 20140711
  Serious: No
  Sender: FDA-Public Use
  Company Number: US-PFIZER INC-2013340279

PATIENT
  Sex: Female

DRUGS (2)
  1. GABAPENTIN [Suspect]
     Dosage: 300 UNK, 3X/DAY
  2. DIAZEPAM [Suspect]
     Dosage: 5 MG, BEFORE BED

REACTIONS (3)
  - Somnolence [Unknown]
  - Dry mouth [Unknown]
  - Constipation [Unknown]
